FAERS Safety Report 4285273-0 (Version None)
Quarter: 2004Q1

REPORT INFORMATION
  Report Type: 
  Country: None (occurrence: None)
  Receive Date: 20040202
  Receipt Date: 20040116
  Transmission Date: 20041129
  Serious: Yes (Hospitalization)
  Sender: FDA-Public Use
  Company Number: 180960

PATIENT
  Age: 50 Year
  Sex: Female
  Weight: 55.7924 kg

DRUGS (4)
  1. AVONEX [Suspect]
     Indication: MULTIPLE SCLEROSIS
     Dosage: 30MCG QW IM
     Route: 030
     Dates: start: 19980101, end: 20030901
  2. PREMARIN [Concomitant]
  3. BENADRYL ^WARNER LAMBERT^ [Concomitant]
  4. AVONEX [Suspect]
     Indication: MULTIPLE SCLEROSIS
     Dosage: 30MCG QW IM
     Route: 030
     Dates: start: 20030901

REACTIONS (11)
  - CHOKING [None]
  - COUGH [None]
  - DEPRESSION [None]
  - FALL [None]
  - HYPERSENSITIVITY [None]
  - HYPERTENSION [None]
  - INTERVERTEBRAL DISC PROTRUSION [None]
  - MUSCLE SPASMS [None]
  - OROPHARYNGEAL SWELLING [None]
  - PARAPLEGIA [None]
  - THROAT TIGHTNESS [None]
